FAERS Safety Report 7795896-X (Version None)
Quarter: 2011Q4

REPORT INFORMATION
  Report Type: 
  Country: None (occurrence: None)
  Receive Date: 20111004
  Receipt Date: 20110926
  Transmission Date: 20120403
  Serious: Yes (Death, Other)
  Sender: FDA-Public Use
  Company Number: US-BAYER-201010435NA

PATIENT
  Age: 73 Year
  Sex: Male
  Weight: 127 kg

DRUGS (7)
  1. ZOCOR [Concomitant]
     Dosage: UNK
     Dates: start: 19961127, end: 19961210
  2. RED BLOOD CELLS [Concomitant]
     Dosage: UNK
     Dates: start: 19961211
  3. TRASYLOL [Suspect]
     Indication: AORTIC VALVE REPLACEMENT
     Dosage: INITIAL (TEST) DOSE OF 1 ML
     Route: 042
     Dates: start: 19961211, end: 19961211
  4. GLUCOPHAGE [Concomitant]
     Dosage: UNK
     Dates: start: 19961204, end: 19961208
  5. ACETYLSALICYLIC ACID SRT [Concomitant]
     Dosage: 81 MG
     Route: 048
  6. TRASYLOL [Suspect]
     Indication: CORONARY ARTERY BYPASS
     Dosage: 100 ML CARDIOPULMONARY BYPASS PRIME
     Route: 042
     Dates: start: 19961211, end: 19961211
  7. PLATELETS [Concomitant]
     Dosage: 5 UNITS
     Dates: start: 19961211

REACTIONS (12)
  - DEATH [None]
  - UNEVALUABLE EVENT [None]
  - RENAL INJURY [None]
  - EMOTIONAL DISTRESS [None]
  - ANXIETY [None]
  - RENAL FAILURE [None]
  - RENAL IMPAIRMENT [None]
  - FEAR [None]
  - ANHEDONIA [None]
  - PAIN [None]
  - STRESS [None]
  - INJURY [None]
